FAERS Safety Report 19581932 (Version 3)
Quarter: 2022Q1

REPORT INFORMATION
  Report Type: Report from Study
  Country: BR (occurrence: BR)
  Receive Date: 20210720
  Receipt Date: 20220117
  Transmission Date: 20220423
  Serious: Yes (Other)
  Sender: FDA-Public Use
  Company Number: NVSC2021BR078365

PATIENT
  Age: 64 Year
  Sex: Female
  Weight: 55 kg

DRUGS (9)
  1. KISQALI [Suspect]
     Active Substance: RIBOCICLIB
     Indication: Breast cancer
     Dosage: 1 DF, QD
     Route: 065
     Dates: start: 20210120
  2. KISQALI [Suspect]
     Active Substance: RIBOCICLIB
     Indication: Nodule
     Dosage: 3 DF
     Route: 065
     Dates: start: 20210120
  3. KISQALI [Suspect]
     Active Substance: RIBOCICLIB
     Dosage: 2 DF
     Route: 065
  4. KISQALI [Suspect]
     Active Substance: RIBOCICLIB
     Dosage: UNK
     Route: 065
     Dates: start: 202101
  5. FULVESTRANT [Suspect]
     Active Substance: FULVESTRANT
     Indication: Product used for unknown indication
     Dosage: UNK
     Route: 065
  6. FULVESTRANT [Suspect]
     Active Substance: FULVESTRANT
     Dosage: UNK
     Route: 065
  7. ANASTROZOLE [Suspect]
     Active Substance: ANASTROZOLE
     Indication: Product used for unknown indication
     Dosage: UNK (TABLET)
     Route: 065
  8. TAMOXIFEN CITRATE [Concomitant]
     Active Substance: TAMOXIFEN CITRATE
     Indication: Breast cancer
     Dosage: 1 UNK, QD
     Route: 065
     Dates: start: 20210120
  9. ENSURE [Concomitant]
     Active Substance: AMINO ACIDS\DEXTROSE\ELECTROLYTES NOS\SOYBEAN OIL\VITAMINS
     Indication: Product used for unknown indication
     Dosage: UNK
     Route: 065

REACTIONS (7)
  - Liver injury [Recovered/Resolved]
  - Decreased immune responsiveness [Recovered/Resolved]
  - Increased appetite [Not Recovered/Not Resolved]
  - Neuralgia [Recovered/Resolved]
  - Decreased immune responsiveness [Unknown]
  - Fall [Unknown]
  - Weight increased [Unknown]

NARRATIVE: CASE EVENT DATE: 20210101
